FAERS Safety Report 9454227 (Version 1)
Quarter: 2013Q3

REPORT INFORMATION
  Report Type: Spontaneous
  Country: US (occurrence: None)
  Receive Date: 20130807
  Receipt Date: 20130807
  Transmission Date: 20140515
  Serious: Yes (Congenital Anomaly)
  Sender: FDA-Public Use
  Company Number: 2013P1013841

PATIENT
  Sex: Male

DRUGS (2)
  1. MYORISAN [Suspect]
     Route: 064
     Dates: start: 20121029, end: 20121116
  2. AMNESTEEM [Suspect]
     Route: 064
     Dates: start: 20121029, end: 20121116

REACTIONS (2)
  - Ear malformation [None]
  - VIIth nerve paralysis [None]
